FAERS Safety Report 26138250 (Version 1)
Quarter: 2025Q4

REPORT INFORMATION
  Report Type: Spontaneous
  Country: US (occurrence: US)
  Receive Date: 20251210
  Receipt Date: 20251210
  Transmission Date: 20260117
  Serious: Yes (Hospitalization)
  Sender: TEVA
  Company Number: US-TEVA-VS-3399910

PATIENT
  Age: 42 Year
  Sex: Male

DRUGS (1)
  1. CLOZAPINE [Suspect]
     Active Substance: CLOZAPINE
     Indication: Schizoaffective disorder
     Route: 065

REACTIONS (8)
  - Withdrawal syndrome [Unknown]
  - Paranoia [Unknown]
  - Skin laceration [Unknown]
  - Hallucination [Unknown]
  - Agitation [Unknown]
  - Cholinergic rebound syndrome [Recovering/Resolving]
  - Product dose omission issue [Unknown]
  - Serotonin syndrome [Recovering/Resolving]
